FAERS Safety Report 5288721-2 (Version None)
Quarter: 2007Q2

REPORT INFORMATION
  Report Type: 
  Country: None (occurrence: None)
  Receive Date: 20070405
  Receipt Date: 20070402
  Transmission Date: 20071010
  Serious: Yes (Death, Hospitalization)
  Sender: FDA-Public Use
  Company Number: 2007SE01877

PATIENT
  Age: 993 Month
  Sex: Male

DRUGS (2)
  1. CASODEX [Suspect]
     Indication: PROSTATE CANCER
     Route: 048
  2. ESTRACYT [Concomitant]
     Indication: PROSTATE CANCER
     Route: 048

REACTIONS (1)
  - HEPATIC NEOPLASM MALIGNANT NON-RESECTABLE [None]
